FAERS Safety Report 6016754-7 (Version None)
Quarter: 2008Q4

REPORT INFORMATION
  Report Type: 
  Country: None (occurrence: None)
  Receive Date: 20081222
  Receipt Date: 20081217
  Transmission Date: 20090506
  Serious: Yes (Other)
  Sender: FDA-Public Use
  Company Number: GB-B.I. PHARMACEUTICALS,INC./RIDGEFIELD-2008-UK-01899UK

PATIENT
  Age: 83 Year
  Sex: Female
  Weight: 56.5 kg

DRUGS (10)
  1. PERSANTIN (00015/0052R) [Suspect]
     Indication: TRANSIENT ISCHAEMIC ATTACK
     Dosage: 200MG
     Route: 048
     Dates: start: 20080204, end: 20081109
  2. ANASTROZOLE [Concomitant]
     Indication: BREAST CANCER
     Route: 048
     Dates: start: 20080616
  3. ASPIRIN [Concomitant]
     Dosage: 75MG
     Route: 048
  4. CALCIFEROL [Concomitant]
     Indication: OSTEOPOROSIS
     Dates: start: 20080912
  5. CALCIUM CARBONATE [Concomitant]
     Indication: OSTEOPOROSIS
  6. GAVISCON [Concomitant]
     Route: 048
  7. LANSOPRAZOLE [Concomitant]
     Indication: DYSPEPSIA
     Dosage: 30MG
     Route: 048
     Dates: start: 20070426
  8. RAMIPRIL [Concomitant]
     Indication: HYPERTENSION
     Dosage: 10MG
     Route: 048
     Dates: start: 20071123
  9. RAMIPRIL [Concomitant]
     Indication: CEREBROVASCULAR ACCIDENT
  10. SIMVASTATIN [Concomitant]
     Dosage: 70MG
     Route: 048
     Dates: start: 20080110

REACTIONS (2)
  - DISCOMFORT [None]
  - VOMITING [None]
